FAERS Safety Report 8143939-6 (Version None)
Quarter: 2012Q1

REPORT INFORMATION
  Report Type: 
  Country: None (occurrence: None)
  Receive Date: 20120217
  Receipt Date: 20120207
  Transmission Date: 20120608
  Serious: Yes (Other)
  Sender: FDA-Public Use
  Company Number: CA-JNJFOC-20120205050

PATIENT
  Sex: Female
  Weight: 50 kg

DRUGS (2)
  1. REMICADE [Suspect]
     Indication: CROHN'S DISEASE
     Dosage: INDUCTION PHASE (2ND INFUSION)
     Route: 042
     Dates: start: 20120207
  2. REMICADE [Suspect]
     Dosage: OVER 2 HOUR
     Route: 042
     Dates: start: 20120124

REACTIONS (5)
  - CHILLS [None]
  - NAIL DISCOLOURATION [None]
  - BODY TEMPERATURE INCREASED [None]
  - NAUSEA [None]
  - INFUSION RELATED REACTION [None]
